FAERS Safety Report 17338358 (Version 1)
Quarter: 2020Q1

REPORT INFORMATION
  Report Type: Spontaneous
  Country: TR (occurrence: TR)
  Receive Date: 20200129
  Receipt Date: 20200129
  Transmission Date: 20200409
  Serious: Yes (Hospitalization, Other)
  Sender: FDA-Public Use
  Company Number: NVSC2020TR020605

PATIENT
  Age: 19 Month
  Sex: Male

DRUGS (2)
  1. CALCIUM GLUCONATE. [Suspect]
     Active Substance: CALCIUM GLUCONATE
     Indication: HEREDITARY HYPOPHOSPHATAEMIC RICKETS
     Dosage: 100 MG/KG, Q12H
     Route: 050
  2. SODIUM BICARBONATE. [Concomitant]
     Active Substance: SODIUM BICARBONATE
     Indication: PRODUCT USED FOR UNKNOWN INDICATION
     Dosage: UNK
     Route: 065

REACTIONS (3)
  - Altered state of consciousness [Unknown]
  - Metabolic acidosis [Recovered/Resolved]
  - Feeling abnormal [Unknown]
